FAERS Safety Report 7084946-4 (Version None)
Quarter: 2010Q4

REPORT INFORMATION
  Report Type: 
  Country: None (occurrence: None)
  Receive Date: 20101105
  Receipt Date: 20101021
  Transmission Date: 20110411
  Serious: Yes (Hospitalization)
  Sender: FDA-Public Use
  Company Number: US-BAYER-201038187NA

PATIENT
  Age: 39 Year
  Sex: Female
  Weight: 108 kg

DRUGS (13)
  1. YAZ [Suspect]
     Indication: PRODUCT USED FOR UNKNOWN INDICATION
     Route: 048
     Dates: start: 20060101, end: 20090301
  2. YASMIN [Suspect]
     Indication: POLYCYSTIC OVARIES
     Route: 048
     Dates: start: 20050101, end: 20080901
  3. DROSPIRENONE AND ETHINYL ESTRADIOL [Suspect]
     Indication: POLYCYSTIC OVARIES
     Route: 048
     Dates: start: 20081001, end: 20090101
  4. METFORMIN [Concomitant]
     Dosage: UNIT DOSE: 750 MG
     Route: 048
  5. ALLEGRO 180 [Concomitant]
     Route: 048
  6. DOXYCYCLINE [Concomitant]
     Dosage: UNIT DOSE: 100 MG
  7. FLONASE [Concomitant]
     Indication: NASAL CONGESTION
     Dosage: 2 SQUIRTS EACH NARES Q DAY AS NEEDED
     Route: 045
  8. JANUVIA [Concomitant]
     Dosage: UNIT DOSE: 100 MG
     Route: 048
  9. REGLAN [Concomitant]
     Dosage: UNIT DOSE: 10 MG
     Route: 048
  10. MICARDIS HCT [Concomitant]
     Dosage: 80/12.5 MG
     Route: 048
     Dates: start: 20080101
  11. MULTI-VITAMIN [Concomitant]
     Route: 048
  12. PRILOSEC [Concomitant]
     Dosage: UNIT DOSE: 20 MG
     Route: 048
  13. ZOCOR [Concomitant]
     Dosage: UNIT DOSE: 20 MG
     Route: 048

REACTIONS (5)
  - ARTHRALGIA [None]
  - DEEP VEIN THROMBOSIS [None]
  - DYSPNOEA [None]
  - PLEURITIC PAIN [None]
  - PULMONARY EMBOLISM [None]
